FAERS Safety Report 5819005-9 (Version None)
Quarter: 2008Q3

REPORT INFORMATION
  Report Type: 
  Country: None (occurrence: None)
  Receive Date: 20080721
  Receipt Date: 20080721
  Transmission Date: 20090109
  Serious: Yes (Other)
  Sender: FDA-Public Use
  Company Number: None

PATIENT
  Sex: Male

DRUGS (5)
  1. DEPAKOTE ER [Suspect]
     Indication: AFFECTIVE DISORDER
     Dosage: 2000MG AT BEDTIME PO
     Route: 048
     Dates: start: 20080501, end: 20080701
  2. RISPERIDONE [Concomitant]
  3. CLONAZEPAM [Concomitant]
  4. DIPHENHYDRAMINE HCL [Concomitant]
  5. OLANZAPINE [Concomitant]

REACTIONS (3)
  - AFFECT LABILITY [None]
  - LEUKOPENIA [None]
  - NEUTROPENIA [None]
